FAERS Safety Report 16961361 (Version 1)
Quarter: 2019Q4

REPORT INFORMATION
  Report Type: Spontaneous
  Country: US (occurrence: US)
  Receive Date: 20191024
  Receipt Date: 20191024
  Transmission Date: 20200122
  Serious: Yes (Other)
  Sender: FDA-Public Use
  Company Number: None

PATIENT
  Sex: Male

DRUGS (1)
  1. TESTOSTERONE 1% GEL PUMP 12.5 MIL 1.25 GM [Suspect]
     Active Substance: TESTOSTERONE

REACTIONS (1)
  - Skin reaction [None]
